FAERS Safety Report 25532671 (Version 1)
Quarter: 2025Q3

REPORT INFORMATION
  Report Type: Spontaneous
  Country: US (occurrence: US)
  Receive Date: 20250709
  Receipt Date: 20250709
  Transmission Date: 20251020
  Serious: No
  Sender: SCYNEXIS, INC.
  Company Number: US-GlaxoSmithKline-US2024106670

PATIENT

DRUGS (1)
  1. BREXAFEMME [Suspect]
     Active Substance: IBREXAFUNGERP CITRATE
     Indication: Product used for unknown indication
     Route: 065

REACTIONS (3)
  - Recalled product administered [Not Recovered/Not Resolved]
  - Product dispensing error [Unknown]
  - Product prescribing error [Unknown]
